FAERS Safety Report 5207021-X (Version None)
Quarter: 2007Q1

REPORT INFORMATION
  Report Type: 
  Country: None (occurrence: None)
  Receive Date: 20070112
  Receipt Date: 20070101
  Transmission Date: 20070707
  Serious: Yes (Disabling)
  Sender: FDA-Public Use
  Company Number: PHBS2007IT00541

PATIENT
  Age: 71 Year
  Sex: Female

DRUGS (6)
  1. ZOMETA [Suspect]
     Indication: BREAST CANCER
     Dosage: 4 MG, MONTHLY
     Route: 042
     Dates: start: 20030301, end: 20031231
  2. ACETAMINOPHEN [Concomitant]
     Route: 065
  3. EPITAXOTERE [Concomitant]
     Route: 065
     Dates: start: 20041101, end: 20050501
  4. VINORELBINE [Concomitant]
     Route: 065
     Dates: start: 20050501, end: 20050701
  5. FASLODEX [Concomitant]
     Route: 065
     Dates: start: 20041101, end: 20050501
  6. TAXOL [Concomitant]
     Dosage: UNK, WEEKLY
     Route: 065
     Dates: start: 20051001

REACTIONS (4)
  - DENTAL TREATMENT [None]
  - HYPERBARIC OXYGEN THERAPY [None]
  - OSTEONECROSIS [None]
  - TOOTH EXTRACTION [None]
